FAERS Safety Report 22172891 (Version 3)
Quarter: 2024Q3

REPORT INFORMATION
  Report Type: Spontaneous
  Country: FR (occurrence: FR)
  Receive Date: 20230404
  Receipt Date: 20240702
  Transmission Date: 20241017
  Serious: Yes (Hospitalization, Other)
  Sender: MYLAN
  Company Number: FR-PFIZER INC-202300122854

PATIENT
  Age: 33 Year
  Sex: Male

DRUGS (18)
  1. VORICONAZOLE [Suspect]
     Active Substance: VORICONAZOLE
     Indication: Fusarium infection
     Dosage: 200 MILLIGRAM/KILOGRAM, QD
     Route: 042
  2. VORICONAZOLE [Suspect]
     Active Substance: VORICONAZOLE
     Indication: Fungal skin infection
  3. VORICONAZOLE [Suspect]
     Active Substance: VORICONAZOLE
     Indication: Fusarium infection
     Dosage: 1 PERCENT, 15 H/DAY
     Route: 061
  4. VORICONAZOLE [Suspect]
     Active Substance: VORICONAZOLE
     Indication: Fungal skin infection
  5. VORICONAZOLE [Suspect]
     Active Substance: VORICONAZOLE
     Indication: Fusarium infection
     Dosage: UNK
     Route: 048
  6. VORICONAZOLE [Suspect]
     Active Substance: VORICONAZOLE
     Indication: Fungal skin infection
  7. AMPHOTERICIN B [Suspect]
     Active Substance: AMPHOTERICIN B
     Indication: Fusarium infection
     Dosage: UNK
     Route: 061
  8. AMPHOTERICIN B [Suspect]
     Active Substance: AMPHOTERICIN B
     Indication: Fungal skin infection
  9. ITRACONAZOLE [Suspect]
     Active Substance: ITRACONAZOLE
     Indication: Fusarium infection
     Dosage: UNK
     Route: 065
  10. ITRACONAZOLE [Suspect]
     Active Substance: ITRACONAZOLE
     Indication: Antifungal prophylaxis
  11. ISAVUCONAZONIUM SULFATE [Suspect]
     Active Substance: ISAVUCONAZONIUM SULFATE
     Indication: Fusarium infection
     Dosage: UNK
     Route: 065
  12. ISAVUCONAZONIUM SULFATE [Suspect]
     Active Substance: ISAVUCONAZONIUM SULFATE
     Indication: Fungal skin infection
  13. CODEINE [Suspect]
     Active Substance: CODEINE
     Indication: Product used for unknown indication
     Dosage: UNK
     Route: 065
  14. IMMUNE GLOBULIN NOS [Concomitant]
     Active Substance: IMMUNE GLOBULIN NOS
     Indication: Prophylaxis
     Dosage: UNK
     Route: 042
  15. POSACONAZOLE [Concomitant]
     Active Substance: POSACONAZOLE
     Indication: Fusarium infection
     Dosage: UNK
     Route: 048
  16. POSACONAZOLE [Concomitant]
     Active Substance: POSACONAZOLE
     Indication: Fungal skin infection
  17. TERBINAFINE [Concomitant]
     Active Substance: TERBINAFINE
     Indication: Fusarium infection
     Dosage: UNK
     Route: 048
  18. TERBINAFINE [Concomitant]
     Active Substance: TERBINAFINE
     Indication: Fungal skin infection

REACTIONS (6)
  - Hepatotoxicity [Unknown]
  - Drug ineffective [Unknown]
  - Drug dependence [Unknown]
  - Drug resistance [Unknown]
  - Treatment noncompliance [Unknown]
  - Drug intolerance [Unknown]
